FAERS Safety Report 8585728-4 (Version None)
Quarter: 2012Q3

REPORT INFORMATION
  Report Type: 
  Country: None (occurrence: None)
  Receive Date: 20120810
  Receipt Date: 20120803
  Transmission Date: 20120928
  Serious: Yes (Other)
  Sender: FDA-Public Use
  Company Number: US-PFIZER INC-2012190739

PATIENT
  Sex: Female

DRUGS (2)
  1. AZITHROMYCIN [Suspect]
     Indication: COUGH
     Dosage: UNK
  2. AZITHROMYCIN [Suspect]
     Dosage: UNK
     Dates: start: 20110101

REACTIONS (4)
  - VISUAL IMPAIRMENT [None]
  - BLINDNESS [None]
  - EYE DISORDER [None]
  - PHOTOPSIA [None]
